FAERS Safety Report 23742631 (Version 1)
Quarter: 2024Q2

REPORT INFORMATION
  Report Type: Spontaneous
  Country: KR (occurrence: KR)
  Receive Date: 20240415
  Receipt Date: 20240415
  Transmission Date: 20240717
  Serious: Yes (Death)
  Sender: FDA-Public Use
  Company Number: KR-BAYER-2024A053529

PATIENT
  Age: 73 Year
  Sex: Male

DRUGS (1)
  1. XARELTO [Suspect]
     Active Substance: RIVAROXABAN
     Indication: Bronchopulmonary aspergillosis
     Dosage: UNK
     Route: 048
     Dates: start: 20230302, end: 20230322

REACTIONS (2)
  - Hepatic enzyme increased [Fatal]
  - Blood bilirubin increased [Fatal]

NARRATIVE: CASE EVENT DATE: 20230316
